FAERS Safety Report 7571612-1 (Version None)
Quarter: 2011Q2

REPORT INFORMATION
  Report Type: 
  Country: None (occurrence: None)
  Receive Date: 20110613
  Receipt Date: 20110601
  Transmission Date: 20111010
  Serious: Yes (Hospitalization)
  Sender: FDA-Public Use
  Company Number: 2011028180

PATIENT
  Age: 54 Year
  Sex: Female
  Weight: 88.4514 kg

DRUGS (9)
  1. THIAMINE (THIAMINE) [Concomitant]
  2. PULMICORT [Concomitant]
  3. ALBUTEROL [Concomitant]
  4. NEXIUM [Concomitant]
  5. SINGULAIR [Concomitant]
  6. ZEMAIRA [Suspect]
     Indication: ALPHA-1 ANTI-TRYPSIN DEFICIENCY
     Dosage: SEE IMAGE
     Route: 042
     Dates: start: 20100401
  7. ZEMAIRA [Suspect]
  8. FORADIL [Concomitant]
  9. SPIRIVA [Concomitant]

REACTIONS (1)
  - PNEUMONIA [None]
